FAERS Safety Report 9353410 (Version 1)
Quarter: 2013Q2

REPORT INFORMATION
  Report Type: Report from Study
  Country: GB (occurrence: GB)
  Receive Date: 20130618
  Receipt Date: 20130618
  Transmission Date: 20140414
  Serious: Yes (Hospitalization)
  Sender: FDA-Public Use
  Company Number: GB-JNJFOC-20130607529

PATIENT
  Age: 48 Year
  Sex: Female
  Weight: 115 kg

DRUGS (9)
  1. USTEKINUMAB [Suspect]
     Indication: PSORIASIS
     Route: 058
     Dates: start: 20120123
  2. SIMVASTATIN [Concomitant]
     Dates: start: 19990727
  3. DICLOFENAC [Concomitant]
     Dates: start: 20030415
  4. METFORMIN [Concomitant]
     Dates: start: 20091130
  5. GLIPIZIDE [Concomitant]
     Dates: start: 20110101
  6. RAMIPRIL [Concomitant]
     Dates: start: 20110511
  7. TRAMADOL [Concomitant]
     Dates: start: 20110805
  8. AMITRIPTYLINE [Concomitant]
     Dates: start: 20130501
  9. PARACETAMOL [Concomitant]

REACTIONS (2)
  - Cerebral cyst [Unknown]
  - Headache [Recovered/Resolved]
